FAERS Safety Report 8964606 (Version 1)
Quarter: 2012Q4

REPORT INFORMATION
  Report Type: 
  Country: FR (occurrence: FR)
  Receive Date: 20121214
  Receipt Date: 20121214
  Transmission Date: 20130627
  Serious: Yes (Hospitalization)
  Sender: FDA-Public Use
  Company Number: FR-JNJFOC-20121203087

PATIENT
  Age: 20 Year
  Sex: Male

DRUGS (6)
  1. HALDOL [Suspect]
     Indication: AGITATION
     Route: 048
     Dates: start: 20120919, end: 20120925
  2. VINCRISTINE SULFATE [Suspect]
     Indication: PRODUCT USED FOR UNKNOWN INDICATION
     Dosage: on 14 and 21-SEP-2012
     Route: 042
     Dates: start: 20120914, end: 20120921
  3. DEXAMETHASONE [Concomitant]
     Dosage: on 14 and 21-SEP-2012(twice)
     Route: 065
  4. GLIVEC [Concomitant]
     Route: 065
     Dates: start: 20120914, end: 20120927
  5. LAROXYL [Concomitant]
     Indication: AGITATION
     Route: 065
     Dates: start: 20120910, end: 20120927
  6. TIENAM [Concomitant]
     Indication: PYREXIA
     Route: 065
     Dates: start: 20120911, end: 20121005

REACTIONS (1)
  - Hyponatraemia [Recovered/Resolved]
